FAERS Safety Report 10713139 (Version 1)
Quarter: 2015Q1

REPORT INFORMATION
  Report Type: Spontaneous
  Country: US (occurrence: US)
  Receive Date: 20150115
  Receipt Date: 20150115
  Transmission Date: 20150721
  Serious: Yes (Other)
  Sender: FDA-Public Use
  Company Number: US-CELGENE-163-22393-14073659

PATIENT
  Age: 65 Year
  Sex: Male
  Weight: 92.2 kg

DRUGS (1)
  1. ISTODAX [Suspect]
     Active Substance: ROMIDEPSIN
     Indication: PERIPHERAL T-CELL LYMPHOMA UNSPECIFIED
     Dosage: 28 MILLIGRAM
     Route: 041
     Dates: start: 20140711, end: 20140716

REACTIONS (2)
  - Disease progression [Unknown]
  - Splenic infarction [Unknown]

NARRATIVE: CASE EVENT DATE: 20140714
